FAERS Safety Report 4320789-X (Version None)
Quarter: 2004Q1

REPORT INFORMATION
  Report Type: 
  Country: None (occurrence: None)
  Receive Date: 20040318
  Receipt Date: 20040304
  Transmission Date: 20041129
  Serious: Yes (Hospitalization)
  Sender: FDA-Public Use
  Company Number: 235392

PATIENT
  Age: 59 Year
  Sex: Male

DRUGS (1)
  1. MIXTARD 30 PENFILL (INSULIN HUMAN) SUSPENSION FOR INJECTION, 100IU/ML [Suspect]
     Indication: ILL-DEFINED DISORDER
     Dosage: 44 IU, QD, INTRAMUSCULAR
     Route: 030
     Dates: start: 20040130, end: 20040201

REACTIONS (3)
  - DEVICE FAILURE [None]
  - DIARRHOEA [None]
  - MALAISE [None]
